FAERS Safety Report 6578730-5 (Version None)
Quarter: 2010Q1

REPORT INFORMATION
  Report Type: 
  Country: None (occurrence: None)
  Receive Date: 20100202
  Receipt Date: 20100126
  Transmission Date: 20100710
  Serious: Yes (Hospitalization)
  Sender: FDA-Public Use
  Company Number: WAES 1001USA01818

PATIENT
  Age: 71 Year
  Sex: Female

DRUGS (13)
  1. CAP VORINOSTAT [Suspect]
     Indication: B-CELL LYMPHOMA
     Dosage: 200 MG/BID 200 MG/DAILY 100 MG/DAILY 100 MG/BID
     Route: 048
     Dates: start: 20090821, end: 20090822
  2. CAP VORINOSTAT [Suspect]
     Indication: B-CELL LYMPHOMA
     Dosage: 200 MG/BID 200 MG/DAILY 100 MG/DAILY 100 MG/BID
     Route: 048
     Dates: start: 20090823, end: 20090823
  3. CAP VORINOSTAT [Suspect]
     Indication: B-CELL LYMPHOMA
     Dosage: 200 MG/BID 200 MG/DAILY 100 MG/DAILY 100 MG/BID
     Route: 048
     Dates: start: 20090824, end: 20090825
  4. CAP VORINOSTAT [Suspect]
     Indication: B-CELL LYMPHOMA
     Dosage: 200 MG/BID 200 MG/DAILY 100 MG/DAILY 100 MG/BID
     Route: 048
     Dates: start: 20090911, end: 20090924
  5. CAP VORINOSTAT [Suspect]
     Indication: B-CELL LYMPHOMA
     Dosage: 200 MG/BID 200 MG/DAILY 100 MG/DAILY 100 MG/BID
     Route: 048
     Dates: start: 20091009, end: 20091022
  6. CAP VORINOSTAT [Suspect]
     Indication: B-CELL LYMPHOMA
     Dosage: 200 MG/BID 200 MG/DAILY 100 MG/DAILY 100 MG/BID
     Route: 048
     Dates: start: 20091106, end: 20091119
  7. CAP VORINOSTAT [Suspect]
     Indication: B-CELL LYMPHOMA
     Dosage: 200 MG/BID 200 MG/DAILY 100 MG/DAILY 100 MG/BID
     Route: 048
     Dates: start: 20091204, end: 20091217
  8. BAKTAR [Concomitant]
  9. METHYCOBAL [Concomitant]
  10. MYSLEE [Concomitant]
  11. TAKEPRON OD [Concomitant]
  12. LANSOPRAZOLE [Concomitant]
  13. WHITE MULBERRY [Concomitant]

REACTIONS (18)
  - CONDITION AGGRAVATED [None]
  - CONSTIPATION [None]
  - DECREASED APPETITE [None]
  - DISEASE PROGRESSION [None]
  - HAEMATOCRIT DECREASED [None]
  - HAEMOGLOBIN DECREASED [None]
  - HYPERTENSION [None]
  - LEUKOPENIA [None]
  - LYMPHOMA [None]
  - NAUSEA [None]
  - NEUTROPENIA [None]
  - PLEURAL EFFUSION [None]
  - PLEURAL HAEMORRHAGE [None]
  - RED BLOOD CELL COUNT DECREASED [None]
  - THERAPEUTIC AGENT TOXICITY [None]
  - THORACIC HAEMORRHAGE [None]
  - THROMBOCYTOPENIA [None]
  - WEIGHT DECREASED [None]
